FAERS Safety Report 15170943 (Version 2)
Quarter: 2019Q1

REPORT INFORMATION
  Report Type: Spontaneous
  Country: US (occurrence: US)
  Receive Date: 20180720
  Receipt Date: 20190111
  Transmission Date: 20190417
  Serious: No
  Sender: FDA-Public Use
  Company Number: US-SA-2018SA195658

PATIENT
  Age: 58 Year
  Sex: Female

DRUGS (6)
  1. DUPIXENT [Suspect]
     Active Substance: DUPILUMAB
     Indication: PSORIASIS
     Dosage: 300 MG, QOW
     Route: 058
     Dates: start: 20171228
  2. MINIVELLE [Concomitant]
     Active Substance: ESTRADIOL
  3. OMEGA 3 [FISH OIL] [Concomitant]
  4. BACITRACIN. [Concomitant]
     Active Substance: BACITRACIN
  5. PROGESTERON [Concomitant]
     Active Substance: PROGESTERONE
  6. LYSINE [Concomitant]
     Active Substance: LYSINE

REACTIONS (8)
  - Product dose omission [Unknown]
  - Stress [Not Recovered/Not Resolved]
  - Blepharitis [Not Recovered/Not Resolved]
  - Product use in unapproved indication [Unknown]
  - Rash [Not Recovered/Not Resolved]
  - Pruritus [Not Recovered/Not Resolved]
  - Dermatitis [Not Recovered/Not Resolved]
  - Erythema [Not Recovered/Not Resolved]

NARRATIVE: CASE EVENT DATE: 20180711
